FAERS Safety Report 9754489 (Version 1)
Quarter: 2013Q4

REPORT INFORMATION
  Report Type: Spontaneous
  Country: US (occurrence: US)
  Receive Date: 20131213
  Receipt Date: 20131213
  Transmission Date: 20140711
  Serious: No
  Sender: FDA-Public Use
  Company Number: US-GLAXOSMITHKLINE-A0785021A

PATIENT
  Age: 50 Year
  Sex: Female

DRUGS (3)
  1. NICODERM CQ CLEAR 21MG [Suspect]
     Indication: SMOKING CESSATION THERAPY
     Dates: start: 20090504, end: 20090511
  2. NICORETTE OTC GUM, ORIGINAL [Suspect]
     Indication: SMOKING CESSATION THERAPY
     Route: 002
     Dates: start: 20090512, end: 20090514
  3. NICORETTE (RX) [Suspect]
     Indication: SMOKING CESSATION THERAPY
     Route: 002

REACTIONS (8)
  - Application site rash [Not Recovered/Not Resolved]
  - Vomiting [Not Recovered/Not Resolved]
  - Pharyngeal oedema [Not Recovered/Not Resolved]
  - Oropharyngeal pain [Not Recovered/Not Resolved]
  - Dysphagia [Not Recovered/Not Resolved]
  - Nausea [Not Recovered/Not Resolved]
  - Malaise [Not Recovered/Not Resolved]
  - Product quality issue [Unknown]
